FAERS Safety Report 25310019 (Version 4)
Quarter: 2025Q2

REPORT INFORMATION
  Report Type: Report from Study
  Country: US (occurrence: US)
  Receive Date: 20250514
  Receipt Date: 20250612
  Transmission Date: 20250716
  Serious: Yes (Hospitalization)
  Sender: ROCHE
  Company Number: US-ROCHE-10000283039

PATIENT
  Age: 83 Year
  Sex: Female

DRUGS (23)
  1. ESBRIET [Suspect]
     Active Substance: PIRFENIDONE
     Indication: Idiopathic pulmonary fibrosis
     Dosage: TAKE 1 TABLET BY MOUTH 3 TIMES A DAY (TOTAL DOSE: 801MG) AFTER MEAL
     Route: 048
     Dates: start: 202203
  2. ESBRIET [Suspect]
     Active Substance: PIRFENIDONE
     Route: 048
     Dates: start: 20250507
  3. ESBRIET [Suspect]
     Active Substance: PIRFENIDONE
     Route: 048
     Dates: start: 20250514
  4. LETROZOLE [Concomitant]
     Active Substance: LETROZOLE
     Dates: start: 20250402
  5. ZYRTEC [Concomitant]
     Active Substance: CETIRIZINE HYDROCHLORIDE
  6. PRILOSEC [Concomitant]
     Active Substance: OMEPRAZOLE MAGNESIUM
     Dates: start: 20250410
  7. DELTASONE [Concomitant]
     Active Substance: PREDNISONE
     Route: 048
  8. CEFTRIAXONE [Concomitant]
     Active Substance: CEFTRIAXONE
     Route: 042
     Dates: start: 20250410
  9. AZITHROMYCIN [Concomitant]
     Active Substance: AZITHROMYCIN
     Dosage: 500 MG IV Q24HR
     Route: 042
  10. AMLODIPINE [Concomitant]
     Active Substance: AMLODIPINE BESYLATE
     Dosage: 10 MG PO DAILY
     Route: 048
     Dates: start: 20250514
  11. PROPRANOLOL [Concomitant]
     Active Substance: PROPRANOLOL HYDROCHLORIDE
     Dosage: 20 MG PO TID
     Route: 048
     Dates: start: 20240930
  12. ATORVASTATIN [Concomitant]
     Active Substance: ATORVASTATIN
     Route: 048
     Dates: start: 20250410
  13. HYDRALAZINE [Concomitant]
     Active Substance: HYDRALAZINE HYDROCHLORIDE
  14. LORATADINE [Concomitant]
     Active Substance: LORATADINE
     Route: 048
  15. BUPROPION [Concomitant]
     Active Substance: BUPROPION
     Dosage: 150 MG PO DAILY
     Route: 048
  16. SERTRALINE [Concomitant]
     Active Substance: SERTRALINE HYDROCHLORIDE
     Dosage: 200 MG PO DAILY
     Route: 048
     Dates: start: 20250421
  17. TRILEPTAL [Concomitant]
     Active Substance: OXCARBAZEPINE
     Dosage: 150 MG PO BID
     Route: 048
  18. NAPROXEN [Concomitant]
     Active Substance: NAPROXEN
     Dates: start: 20250421
  19. PREDNISONE [Concomitant]
     Active Substance: PREDNISONE
     Dates: start: 20250514
  20. ALENDRONATE [Concomitant]
     Active Substance: ALENDRONATE SODIUM
     Dates: start: 20250108
  21. BUPROPION [Concomitant]
     Active Substance: BUPROPION
     Dosage: TABLET (150 MG TOTAL) BY MOUTH DALLY FOR 180 DAYS
     Route: 048
     Dates: start: 20250421
  22. OXCARBAZEPINE [Concomitant]
     Active Substance: OXCARBAZEPINE
     Dates: start: 20250421
  23. FLUTICASONE PROPIONATE [Concomitant]
     Active Substance: FLUTICASONE PROPIONATE
     Dates: start: 20241219

REACTIONS (22)
  - Pulmonary fibrosis [Recovering/Resolving]
  - Night sweats [Unknown]
  - Neck pain [Unknown]
  - Musculoskeletal stiffness [Unknown]
  - Aspiration [Unknown]
  - Dizziness [Unknown]
  - Decreased appetite [Unknown]
  - Vomiting [Unknown]
  - Pollakiuria [Unknown]
  - Nightmare [Unknown]
  - Bradycardia [Unknown]
  - Oxygen saturation decreased [Unknown]
  - Rhinovirus infection [Unknown]
  - Dyspnoea [Unknown]
  - Sputum increased [Unknown]
  - Rhinorrhoea [Unknown]
  - Pain [Unknown]
  - Pneumonia [Unknown]
  - Chronic kidney disease [Unknown]
  - Rhinitis allergic [Unknown]
  - Leukocytosis [Unknown]
  - Anaemia [Unknown]

NARRATIVE: CASE EVENT DATE: 20250501
